FAERS Safety Report 13961696 (Version 2)
Quarter: 2017Q3

REPORT INFORMATION
  Report Type: Report from Study
  Country: CA (occurrence: CA)
  Receive Date: 20170912
  Receipt Date: 20170927
  Transmission Date: 20171128
  Serious: Yes (Death, Other)
  Sender: FDA-Public Use
  Company Number: CA-GILEAD-2017-0292900

PATIENT
  Age: 63 Year
  Sex: Male
  Weight: 79.37 kg

DRUGS (1)
  1. SOFOSBUVIR W/VELPATASVIR [Suspect]
     Active Substance: SOFOSBUVIR\VELPATASVIR
     Indication: HEPATITIS C VIRUS TEST POSITIVE
     Dosage: 1 DF, UNK
     Route: 048
     Dates: start: 20170801, end: 20170901

REACTIONS (1)
  - Hepatic failure [Fatal]
